FAERS Safety Report 5523235-3 (Version None)
Quarter: 2007Q4

REPORT INFORMATION
  Report Type: 
  Country: None (occurrence: None)
  Receive Date: 20071116
  Receipt Date: 20071116
  Transmission Date: 20080405
  Serious: Yes (Other)
  Sender: FDA-Public Use
  Company Number: None

PATIENT
  Sex: Female

DRUGS (5)
  1. DILAUDID [Suspect]
     Indication: DEPRESSION
     Dosage: 1MG PO
     Route: 048
  2. LORTAB [Suspect]
     Dosage: 5MG 1-2 PO Q6HR
     Route: 048
  3. ALCHOL [Suspect]
  4. OTC COUGH SYRUP [Suspect]
  5. VALIUM [Suspect]
     Dosage: 5 MG Q 12 HR

REACTIONS (1)
  - SEDATION [None]
